FAERS Safety Report 9091246 (Version 1)
Quarter: 2013Q1

REPORT INFORMATION
  Report Type: Report from Study
  Country: US (occurrence: US)
  Receive Date: 20130218
  Receipt Date: 20130218
  Transmission Date: 20140127
  Serious: No
  Sender: FDA-Public Use
  Company Number: US-ABBOTT-12P-163-0906610-00

PATIENT
  Sex: Male
  Weight: 95.34 kg

DRUGS (7)
  1. SIMCOR 500MG/20MG [Suspect]
     Indication: LOW DENSITY LIPOPROTEIN INCREASED
     Dosage: 500/20MG AT BED TIME
     Route: 048
  2. SIMCOR 500MG/20MG [Suspect]
     Indication: FAMILIAL RISK FACTOR
     Dosage: 1000/20MG AT BED TIME
     Route: 048
  3. SIMCOR 500MG/20MG [Suspect]
     Route: 048
  4. SIMCOR 500MG/20MG [Suspect]
  5. CINNAMON SUPPLEMENT [Concomitant]
     Indication: PRODUCT USED FOR UNKNOWN INDICATION
  6. ASA [Concomitant]
     Indication: PRODUCT USED FOR UNKNOWN INDICATION
     Dosage: AT BED TIME
     Route: 048
  7. FENOFIBRATE [Concomitant]
     Indication: PRODUCT USED FOR UNKNOWN INDICATION

REACTIONS (1)
  - Flushing [Recovered/Resolved]
